FAERS Safety Report 10476504 (Version 2)
Quarter: 2014Q4

REPORT INFORMATION
  Report Type: Spontaneous
  Country: JP (occurrence: JP)
  Receive Date: 20140925
  Receipt Date: 20141024
  Transmission Date: 20150528
  Serious: Yes (Other)
  Sender: FDA-Public Use
  Company Number: JP-GLAXOSMITHKLINE-B1036345A

PATIENT

DRUGS (1)
  1. VALACICLOVIR HYDROCHLORIDE [Suspect]
     Active Substance: VALACYCLOVIR HYDROCHLORIDE
     Indication: HERPES ZOSTER
     Dosage: 3000 MG, U
     Route: 048

REACTIONS (6)
  - Renal impairment [Unknown]
  - Gait deviation [Unknown]
  - Dyslalia [Unknown]
  - Dysarthria [Unknown]
  - Toxic encephalopathy [Unknown]
  - Disorientation [Unknown]
